FAERS Safety Report 6275884-5 (Version None)
Quarter: 2009Q3

REPORT INFORMATION
  Report Type: 
  Country: None (occurrence: None)
  Receive Date: 20090720
  Receipt Date: 20090708
  Transmission Date: 20100115
  Serious: Yes (Hospitalization)
  Sender: FDA-Public Use
  Company Number: 2009-02743

PATIENT
  Age: 83 Year
  Sex: Male
  Weight: 69.2 kg

DRUGS (2)
  1. VELCADE [Suspect]
     Indication: ACUTE MYELOID LEUKAEMIA
     Dosage: 1.3 MG/M2, IV BOLUS
     Route: 040
     Dates: start: 20090507, end: 20090618
  2. DECITABINE(DECITABINE) INJECTION [Suspect]
     Indication: ACUTE MYELOID LEUKAEMIA
     Dosage: 20 MG/M2, INTRAVENOUS
     Route: 042
     Dates: start: 20090507, end: 20090613

REACTIONS (10)
  - BLOOD CULTURE POSITIVE [None]
  - DIVERTICULITIS [None]
  - GASTROINTESTINAL INFECTION [None]
  - LARGE INTESTINE PERFORATION [None]
  - LOBAR PNEUMONIA [None]
  - NEUTROPENIA [None]
  - PSEUDOMONAS INFECTION [None]
  - SEPSIS [None]
  - SPUTUM CULTURE POSITIVE [None]
  - WHITE BLOOD CELL COUNT DECREASED [None]
